FAERS Safety Report 8136017-3 (Version None)
Quarter: 2012Q1

REPORT INFORMATION
  Report Type: 
  Country: None (occurrence: None)
  Receive Date: 20120214
  Receipt Date: 20120210
  Transmission Date: 20120608
  Serious: No
  Sender: FDA-Public Use
  Company Number: US-PFIZER INC-2012037173

PATIENT
  Sex: Female
  Weight: 68.027 kg

DRUGS (6)
  1. LEVOTHYROXINE [Concomitant]
     Dosage: UNK, DAILY
  2. LYRICA [Suspect]
     Indication: FIBROMYALGIA
     Dosage: 50 MG, 3X/DAY
     Route: 048
     Dates: start: 20110117, end: 20110701
  3. CODEINE SULFATE [Suspect]
     Dosage: UNK
  4. ULTRAM [Suspect]
     Indication: FIBROMYALGIA
     Dosage: 100 MG, 3X/DAY
  5. HYDROCHLOROTHIAZIDE [Concomitant]
     Indication: HYPERTENSION
     Dosage: 25 MG, DAILY
  6. ZOLOFT [Suspect]
     Indication: DEPRESSION
     Dosage: UNK
     Dates: start: 20110701

REACTIONS (6)
  - OEDEMA PERIPHERAL [None]
  - INSOMNIA [None]
  - DRUG HYPERSENSITIVITY [None]
  - MALAISE [None]
  - PAIN [None]
  - DRUG INEFFECTIVE [None]
